FAERS Safety Report 5511304-3 (Version None)
Quarter: 2007Q4

REPORT INFORMATION
  Report Type: 
  Country: None (occurrence: None)
  Receive Date: 20071109
  Receipt Date: 20070904
  Transmission Date: 20080405
  Serious: No
  Sender: FDA-Public Use
  Company Number: A0669218A

PATIENT
  Age: 50 Year
  Sex: Male

DRUGS (2)
  1. ALTABAX [Suspect]
     Indication: WOUND
     Dosage: 1APP SINGLE DOSE
     Route: 061
     Dates: start: 20070805, end: 20070805
  2. DOXYCYCLINE [Concomitant]

REACTIONS (8)
  - APPLICATION SITE ERYTHEMA [None]
  - APPLICATION SITE INFLAMMATION [None]
  - APPLICATION SITE IRRITATION [None]
  - APPLICATION SITE PAIN [None]
  - COLD SWEAT [None]
  - FEELING COLD [None]
  - HYPERSENSITIVITY [None]
  - SWOLLEN TONGUE [None]
